FAERS Safety Report 11714932 (Version 5)
Quarter: 2016Q1

REPORT INFORMATION
  Report Type: Spontaneous
  Country: US (occurrence: US)
  Receive Date: 20151109
  Receipt Date: 20160211
  Transmission Date: 20160525
  Serious: Yes (Death, Hospitalization)
  Sender: FDA-Public Use
  Company Number: US-ACTELION-A-US2015-126899

PATIENT
  Age: 73 Year
  Sex: Female

DRUGS (3)
  1. OPSUMIT [Suspect]
     Active Substance: MACITENTAN
     Indication: PULMONARY ARTERIAL HYPERTENSION
     Dosage: 10 MG, UNK
     Route: 048
     Dates: start: 20140906
  2. ADCIRCA [Concomitant]
     Active Substance: TADALAFIL
  3. SILDENAFIL. [Concomitant]
     Active Substance: SILDENAFIL

REACTIONS (5)
  - Death [Fatal]
  - Respiratory failure [Recovering/Resolving]
  - Renal failure [Recovering/Resolving]
  - Dyspnoea [Recovering/Resolving]
  - Hypotension [Recovering/Resolving]

NARRATIVE: CASE EVENT DATE: 20160123
